FAERS Safety Report 9702057 (Version 2)
Quarter: 2013Q4

REPORT INFORMATION
  Report Type: Report from Study
  Country: BR (occurrence: BR)
  Receive Date: 20131121
  Receipt Date: 20131121
  Transmission Date: 20140711
  Serious: Yes (Other)
  Sender: FDA-Public Use
  Company Number: PHHY2011BR72253

PATIENT
  Age: 86 Year
  Sex: Female
  Weight: 60 kg

DRUGS (7)
  1. EXELON [Suspect]
     Indication: DEMENTIA ALZHEIMER^S TYPE
     Dosage: 3 MG, DAILY
     Route: 048
  2. EXELON [Suspect]
     Dosage: 1.5 MG, BID (ONE CAPSULE IN THE MORNING AND ONE IN THE NIGHT)
     Route: 048
  3. EXELON PATCH [Suspect]
     Dosage: 9.5 MG, DAILY
     Route: 062
  4. GLIFAGE [Concomitant]
     Dosage: UNK
  5. LOSARTAN [Concomitant]
     Dosage: UNK
  6. AAS [Concomitant]
     Dosage: UNK
  7. ATORVASTATIN [Concomitant]
     Indication: BLOOD CHOLESTEROL
     Dosage: UNK

REACTIONS (9)
  - Apparent death [Recovered/Resolved]
  - Dysentery [Recovered/Resolved]
  - Diarrhoea [Recovered/Resolved]
  - Malaise [Recovered/Resolved]
  - Abdominal pain [Recovered/Resolved]
  - Nausea [Recovered/Resolved]
  - Vomiting [Recovered/Resolved]
  - Dizziness [Recovered/Resolved]
  - Dyspepsia [Recovered/Resolved]
